FAERS Safety Report 9595292 (Version 1)
Quarter: 2013Q3

REPORT INFORMATION
  Report Type: Spontaneous
  Country: US (occurrence: None)
  Receive Date: 20130927
  Receipt Date: 20130927
  Transmission Date: 20140515
  Serious: Yes (Death)
  Sender: FDA-Public Use
  Company Number: CABO-13002802

PATIENT
  Age: 57 Year
  Sex: Male

DRUGS (2)
  1. COMETRIQ [Suspect]
     Indication: PROSTATE CANCER
     Dosage: 100 MG, QD, ORAL
     Route: 048
     Dates: start: 20130215, end: 201305
  2. COMETRIQ [Suspect]
     Indication: METASTASES TO BONE
     Dosage: 100 MG, QD, ORAL
     Route: 048
     Dates: start: 20130215, end: 201305

REACTIONS (1)
  - Malignant neoplasm progression [None]
